FAERS Safety Report 8298580-1 (Version None)
Quarter: 2012Q2

REPORT INFORMATION
  Report Type: 
  Country: None (occurrence: None)
  Receive Date: 20120419
  Receipt Date: 20111103
  Transmission Date: 20120825
  Serious: No
  Sender: FDA-Public Use
  Company Number: US-ABBOTT-11P-163-0871105-00

PATIENT
  Sex: Male
  Weight: 50.3 kg

DRUGS (3)
  1. HYDROCORTISONE [Concomitant]
     Indication: PRODUCT USED FOR UNKNOWN INDICATION
  2. GROWTH HORMONE [Concomitant]
     Indication: PRODUCT USED FOR UNKNOWN INDICATION
  3. LUPRON DEPOT-PED [Suspect]
     Indication: PRECOCIOUS PUBERTY
     Dosage: ON HOLD FOR 5 DAYS BY PRESCRIBING MDEXPIRATION UNAVAILABLE
     Route: 050
     Dates: start: 20110101

REACTIONS (1)
  - HEADACHE [None]
